FAERS Safety Report 10165529 (Version 1)
Quarter: 2014Q2

REPORT INFORMATION
  Report Type: Spontaneous
  Country: US (occurrence: US)
  Receive Date: 20140510
  Receipt Date: 20140510
  Transmission Date: 20141212
  Serious: No
  Sender: FDA-Public Use
  Company Number: US-BRISTOL-MYERS SQUIBB COMPANY-19851005

PATIENT
  Age: 57 Year
  Sex: Female
  Weight: 69.39 kg

DRUGS (3)
  1. BYDUREON [Suspect]
     Indication: TYPE 2 DIABETES MELLITUS
     Dosage: MOST RECENT DOSE :20NOV2013
     Route: 058
  2. METFORMIN [Concomitant]
     Dosage: 1DF: 1000(UNITS NOS).
  3. ACTOS [Concomitant]

REACTIONS (6)
  - Constipation [Unknown]
  - Nausea [Not Recovered/Not Resolved]
  - Fatigue [Unknown]
  - Diarrhoea [Unknown]
  - Injection site pain [Unknown]
  - Vomiting [Not Recovered/Not Resolved]
